FAERS Safety Report 5224566-7 (Version None)
Quarter: 2007Q1

REPORT INFORMATION
  Report Type: 
  Country: None (occurrence: None)
  Receive Date: 20070126
  Receipt Date: 20070112
  Transmission Date: 20070707
  Serious: Yes (Hospitalization)
  Sender: FDA-Public Use
  Company Number: 2007SP000142

PATIENT
  Age: 71 Year
  Sex: Male
  Weight: 79.3795 kg

DRUGS (5)
  1. XOPENEX [Suspect]
     Indication: EMPHYSEMA
     Dosage: 90 UG; QID; INHALATION
     Route: 055
     Dates: start: 20060101
  2. FUROSEMIDE [Concomitant]
  3. AMLODIPINE [Concomitant]
  4. FLOVENT [Concomitant]
  5. ALBUTEROL [Concomitant]

REACTIONS (2)
  - MYOCARDIAL INFARCTION [None]
  - PERIPHERAL EMBOLISM [None]
